FAERS Safety Report 5819008-4 (Version None)
Quarter: 2008Q3

REPORT INFORMATION
  Report Type: 
  Country: None (occurrence: None)
  Receive Date: 20080723
  Receipt Date: 20080710
  Transmission Date: 20090109
  Serious: Yes (Hospitalization, Other)
  Sender: FDA-Public Use
  Company Number: US-CVT-080039

PATIENT

DRUGS (23)
  1. RANEXA [Suspect]
     Indication: ANGINA PECTORIS
     Dosage: 1000 MG, BID
     Route: 048
     Dates: start: 20080510, end: 20080501
  2. RANEXA [Suspect]
     Dosage: 1500 MG, QD
     Route: 048
     Dates: start: 20080510
  3. DILAUDID [Suspect]
     Dates: start: 20080510, end: 20080516
  4. ACETAMINOPHEN AND HYDROCODONE BITARTRATE [Concomitant]
  5. BUMEX [Concomitant]
  6. CALCIUM CARBONATE [Concomitant]
  7. PROZAC [Concomitant]
  8. NEURONTIN [Concomitant]
  9. FLOMAX /01280302/ [Concomitant]
  10. METOPROLOL                         /00376901/ [Concomitant]
  11. INSULIN /00030501/ [Concomitant]
  12. PANTOPRAZOLE SODIUM [Concomitant]
  13. IMDUR [Concomitant]
  14. SPIRONOLACTONE [Concomitant]
  15. METOLAZONE [Concomitant]
  16. LEVOFLOXACIN [Concomitant]
  17. NITROGLYCERIN [Concomitant]
  18. COUMADIN [Concomitant]
  19. EPOGEN [Concomitant]
  20. NYSTATIN [Concomitant]
  21. PREDNISONE                         /00044701/ [Concomitant]
  22. PHENERGAN                          /00033001/ [Concomitant]
  23. AMBIEN [Concomitant]

REACTIONS (6)
  - ASCITES [None]
  - DELIRIUM [None]
  - GENERALISED OEDEMA [None]
  - HYPOXIA [None]
  - RENAL FAILURE ACUTE [None]
  - SLEEP APNOEA SYNDROME [None]
